FAERS Safety Report 6915217-1 (Version None)
Quarter: 2010Q3

REPORT INFORMATION
  Report Type: 
  Country: None (occurrence: None)
  Receive Date: 20100805
  Receipt Date: 20100805
  Transmission Date: 20110219
  Serious: Yes (Other)
  Sender: FDA-Public Use
  Company Number: None

PATIENT
  Age: 66 Year
  Sex: Female
  Weight: 83.9154 kg

DRUGS (1)
  1. LEVAQUIN [Suspect]
     Indication: OTITIS EXTERNA
     Dosage: 750 MG DAILY PO
     Route: 048
     Dates: start: 20100727, end: 20100801

REACTIONS (7)
  - FATIGUE [None]
  - HYPERSOMNIA [None]
  - MIDDLE INSOMNIA [None]
  - MUSCLE STRAIN [None]
  - NO THERAPEUTIC RESPONSE [None]
  - PAIN [None]
  - PAIN IN EXTREMITY [None]
